FAERS Safety Report 16200508 (Version 1)
Quarter: 2019Q2

REPORT INFORMATION
  Report Type: Spontaneous
  Country: BA (occurrence: BA)
  Receive Date: 20190416
  Receipt Date: 20190416
  Transmission Date: 20190711
  Serious: Yes (Death)
  Sender: FDA-Public Use
  Company Number: BA-AMERIGEN PHARMACEUTICALS, INC-2019AMG000015

PATIENT

DRUGS (1)
  1. TRANEXAMIC ACID UNKNOWN [Suspect]
     Active Substance: TRANEXAMIC ACID
     Indication: KNEE ARTHROPLASTY
     Dosage: 1 MG, UNK
     Route: 065

REACTIONS (2)
  - Pulmonary embolism [Fatal]
  - Cardiac arrest [Fatal]
